FAERS Safety Report 18780422 (Version 1)
Quarter: 2021Q1

REPORT INFORMATION
  Report Type: Spontaneous
  Country: US (occurrence: US)
  Receive Date: 20210122
  Receipt Date: 20210122
  Transmission Date: 20210419
  Serious: Yes (Other)
  Sender: FDA-Public Use
  Company Number: None

PATIENT
  Age: 68 Year
  Sex: Female
  Weight: 85.73 kg

DRUGS (1)
  1. BAMLANIVIMAB 700MG/20ML [Suspect]
     Active Substance: BAMLANIVIMAB
     Dosage: ?          OTHER DOSE:700/2;?
     Route: 042
     Dates: start: 20210121

REACTIONS (1)
  - Oxygen saturation decreased [None]

NARRATIVE: CASE EVENT DATE: 20210121
